FAERS Safety Report 8342241-7 (Version None)
Quarter: 2012Q2

REPORT INFORMATION
  Report Type: 
  Country: None (occurrence: None)
  Receive Date: 20120507
  Receipt Date: 20120424
  Transmission Date: 20120825
  Serious: Yes (Other)
  Sender: FDA-Public Use
  Company Number: DE-AMGEN-DEUSP2012026413

PATIENT
  Age: 61 Year
  Sex: Female

DRUGS (1)
  1. ENBREL [Suspect]
     Indication: PSORIASIS
     Dosage: UNK
     Dates: start: 20110519

REACTIONS (4)
  - PROTEIN URINE PRESENT [None]
  - RHEUMATOID ARTHRITIS [None]
  - BLOOD URINE PRESENT [None]
  - PSORIASIS [None]
